FAERS Safety Report 8206900-9 (Version None)
Quarter: 2012Q1

REPORT INFORMATION
  Report Type: 
  Country: None (occurrence: None)
  Receive Date: 20120314
  Receipt Date: 20120306
  Transmission Date: 20120608
  Serious: Yes (Death)
  Sender: FDA-Public Use
  Company Number: ES-B.I. PHARMACEUTICALS,INC./RIDGEFIELD-2010-DE-05302BY

PATIENT
  Age: 69 Year
  Sex: Female

DRUGS (9)
  1. FUROSEMIDE [Suspect]
     Indication: PRODUCT USED FOR UNKNOWN INDICATION
     Dosage: 20 MG
     Route: 048
     Dates: start: 20100101, end: 20100711
  2. VOLTAREN [Suspect]
     Indication: PRODUCT USED FOR UNKNOWN INDICATION
     Route: 048
     Dates: start: 20090101, end: 20100101
  3. ALLOPURINOL [Suspect]
     Dosage: 300 MG
     Route: 048
     Dates: start: 20100301, end: 20100714
  4. OMACOR [Suspect]
     Indication: PRODUCT USED FOR UNKNOWN INDICATION
     Dosage: 2 G
     Route: 048
     Dates: start: 20100101, end: 20100714
  5. TELMISARTAN AND HYDROCHLOROTHIAZIDE [Suspect]
     Indication: HYPERTENSION
     Dosage: 1 ANZ
     Route: 048
     Dates: start: 20100301, end: 20100714
  6. ACETAMINOPHEN [Suspect]
     Indication: PRODUCT USED FOR UNKNOWN INDICATION
     Dosage: 1.5 G
     Route: 048
     Dates: start: 20100101, end: 20100714
  7. OMEPRAZOLE [Suspect]
     Indication: GASTRIC ULCER
     Dosage: 40 MG
     Route: 048
     Dates: start: 20091101, end: 20100714
  8. ANALGILASA [Suspect]
     Indication: OSTEOARTHRITIS
     Route: 048
     Dates: start: 20091101, end: 20100714
  9. DIPYRONE TAB [Suspect]
     Indication: PRODUCT USED FOR UNKNOWN INDICATION
     Route: 065
     Dates: start: 20091001, end: 20100101

REACTIONS (3)
  - APLASTIC ANAEMIA [None]
  - PETECHIAE [None]
  - ASTHENIA [None]
